FAERS Safety Report 9919455 (Version 1)
Quarter: 2014Q1

REPORT INFORMATION
  Report Type: Spontaneous
  Country: FR (occurrence: FR)
  Receive Date: 20140224
  Receipt Date: 20140224
  Transmission Date: 20141002
  Serious: Yes (Hospitalization)
  Sender: FDA-Public Use
  Company Number: FR-JNJFOC-20140213852

PATIENT
  Age: 84 Year
  Sex: Female

DRUGS (11)
  1. REMICADE [Suspect]
     Indication: CROHN^S DISEASE
     Route: 042
  2. REMICADE [Suspect]
     Indication: CROHN^S DISEASE
     Route: 042
  3. FOZIRETIC [Concomitant]
     Indication: HYPERTENSION
     Route: 048
     Dates: end: 20121216
  4. LASILIX [Concomitant]
     Indication: SODIUM RETENTION
     Route: 048
     Dates: end: 20121216
  5. LANZOR [Concomitant]
     Indication: ULCER
     Route: 048
     Dates: end: 20121216
  6. ADANCOR [Concomitant]
     Indication: ANGINA PECTORIS
     Route: 048
     Dates: end: 20121216
  7. TEMESTA [Concomitant]
     Indication: INSOMNIA
     Route: 048
  8. SPASFON [Concomitant]
     Indication: PAIN
     Route: 048
  9. NEBILOX [Concomitant]
     Indication: CARDIAC FAILURE
     Route: 048
  10. CERVOXAN [Concomitant]
     Indication: ISCHAEMIA
     Route: 048
  11. DUROGESIC [Concomitant]
     Indication: PAIN
     Route: 062

REACTIONS (1)
  - Herpes zoster [Unknown]
